FAERS Safety Report 15696309 (Version 1)
Quarter: 2018Q4

REPORT INFORMATION
  Report Type: Other
  Country: CA (occurrence: CA)
  Receive Date: 20181206
  Receipt Date: 20181206
  Transmission Date: 20190205
  Serious: Yes (Hospitalization)
  Sender: FDA-Public Use
  Company Number: CA-HLSUS-2018-CA-001520

PATIENT
  Age: 36 Year
  Sex: Male

DRUGS (5)
  1. FLUOXETINE [Concomitant]
     Active Substance: FLUOXETINE HYDROCHLORIDE
     Dosage: 40 MG X DAILY
  2. CLONAZEPAM. [Concomitant]
     Active Substance: CLONAZEPAM
     Dosage: 1 MG X QID
     Route: 048
  3. CLOZARIL [Suspect]
     Active Substance: CLOZAPINE
     Indication: SCHIZOPHRENIA
     Dosage: 300 MG X HS
     Route: 048
     Dates: start: 20030409
  4. PANTOPRAZOLE [Concomitant]
     Active Substance: PANTOPRAZOLE
     Dosage: 40 MG X DAILY X 4 WEEKS
     Route: 048
  5. LORAZEPAM. [Concomitant]
     Active Substance: LORAZEPAM
     Dosage: 0.25 MG X BEDTIME
     Route: 048

REACTIONS (8)
  - Crohn^s disease [Unknown]
  - Pericardial effusion [Recovered/Resolved]
  - Lymphadenopathy mediastinal [Unknown]
  - Oesophagitis [None]
  - Pleural effusion [Unknown]
  - Pericarditis [Recovered/Resolved]
  - Haemorrhoids [None]
  - Dyspnoea [Unknown]

NARRATIVE: CASE EVENT DATE: 20180929
